FAERS Safety Report 7553547-3 (Version None)
Quarter: 2011Q2

REPORT INFORMATION
  Report Type: 
  Country: None (occurrence: None)
  Receive Date: 20110617
  Receipt Date: 20110202
  Transmission Date: 20111010
  Serious: Yes (Hospitalization, Disabling, Other)
  Sender: FDA-Public Use
  Company Number: US-BAYER-201039656NA

PATIENT
  Age: 22 Year
  Sex: Female
  Weight: 90.703 kg

DRUGS (5)
  1. ONE-A-DAY [VIT C,B12,D2,B3,B6,RETINOL,B2,B1 MONONITR] [Concomitant]
     Dosage: UNK UNK, QD
     Dates: start: 20030101, end: 20081021
  2. AVELOX [Concomitant]
     Dosage: 400 MG, UNK
     Dates: start: 20080301
  3. TUSSO-C [Concomitant]
     Dosage: UNK
     Dates: start: 20080301
  4. XYZAL [Concomitant]
     Dosage: 5 MG, UNK
     Dates: start: 20080301
  5. YAZ [Suspect]
     Indication: CONTRACEPTION
     Route: 048
     Dates: start: 20070601, end: 20081022

REACTIONS (6)
  - CEREBROVASCULAR ACCIDENT [None]
  - DEEP VEIN THROMBOSIS [None]
  - PAIN [None]
  - NERVE INJURY [None]
  - HYPERCOAGULATION [None]
  - APHASIA [None]
